FAERS Safety Report 8352217-1 (Version None)
Quarter: 2012Q2

REPORT INFORMATION
  Report Type: 
  Country: None (occurrence: None)
  Receive Date: 20120509
  Receipt Date: 20120430
  Transmission Date: 20120825
  Serious: No
  Sender: FDA-Public Use
  Company Number: AUR-APL-2011-05537

PATIENT
  Age: 78 Year
  Sex: Female
  Weight: 85.2762 kg

DRUGS (4)
  1. SIMVASTATIN [Concomitant]
  2. ZOLPIDEM [Suspect]
     Indication: INSOMNIA
     Dosage: (5 MG, 1 D), ORAL
     Route: 048
     Dates: start: 20111008
  3. NORVASC [Concomitant]
  4. SYNTHROID [Concomitant]

REACTIONS (3)
  - DRUG INEFFECTIVE [None]
  - PRODUCT QUALITY ISSUE [None]
  - PRODUCT SUBSTITUTION ISSUE [None]
